FAERS Safety Report 21122471 (Version 1)
Quarter: 2022Q3

REPORT INFORMATION
  Report Type: Spontaneous
  Country: US (occurrence: None)
  Receive Date: 20220723
  Receipt Date: 20220723
  Transmission Date: 20221026
  Serious: No
  Sender: FDA-Public Use
  Company Number: 2022A258459

PATIENT
  Age: 73 Year
  Sex: Female
  Weight: 115.7 kg

DRUGS (1)
  1. SYMBICORT [Suspect]
     Active Substance: BUDESONIDE\FORMOTEROL FUMARATE DIHYDRATE
     Indication: Asthma
     Dosage: 160 TWO TIMES A DAY, 2 PUFFS TWICE A DAY
     Route: 055
     Dates: start: 202205

REACTIONS (4)
  - Wheezing [Unknown]
  - Intentional device misuse [Unknown]
  - Drug ineffective [Unknown]
  - Device delivery system issue [Unknown]

NARRATIVE: CASE EVENT DATE: 20220714
